FAERS Safety Report 18288691 (Version 1)
Quarter: 2020Q3

REPORT INFORMATION
  Report Type: Spontaneous
  Country: US (occurrence: US)
  Receive Date: 20200918
  Receipt Date: 20200918
  Transmission Date: 20201103
  Serious: Yes (Other)
  Sender: FDA-Public Use
  Company Number: None

PATIENT
  Age: 83 Year
  Sex: Female
  Weight: 52.2 kg

DRUGS (3)
  1. ULTIVA [Suspect]
     Active Substance: REMIFENTANIL HYDROCHLORIDE
     Route: 040
  2. REMIFENTANIL [Suspect]
     Active Substance: REMIFENTANIL
  3. REMIFENTANIL [Suspect]
     Active Substance: REMIFENTANIL
     Route: 040

REACTIONS (3)
  - Dyskinesia [None]
  - Adverse drug reaction [None]
  - Drug ineffective [None]

NARRATIVE: CASE EVENT DATE: 20200902
